FAERS Safety Report 16878734 (Version 3)
Quarter: 2020Q3

REPORT INFORMATION
  Report Type: Spontaneous
  Country: US (occurrence: US)
  Receive Date: 20191002
  Receipt Date: 20200814
  Transmission Date: 20201102
  Serious: No
  Sender: FDA-Public Use
  Company Number: US-SA-2019SA243306

PATIENT

DRUGS (2)
  1. KEVZARA [Suspect]
     Active Substance: SARILUMAB
     Indication: RHEUMATOID ARTHRITIS
     Dosage: 200 MG, QOW
     Route: 058
     Dates: start: 201908, end: 201908
  2. KEVZARA [Suspect]
     Active Substance: SARILUMAB
     Dosage: 200 MG, QOW
     Route: 058
     Dates: start: 2019

REACTIONS (6)
  - Dyspnoea [Unknown]
  - Injection site erythema [Unknown]
  - Rash pruritic [Unknown]
  - Injection site reaction [Unknown]
  - Injection site pruritus [Unknown]
  - Injection site rash [Unknown]

NARRATIVE: CASE EVENT DATE: 20190901
